FAERS Safety Report 9860001 (Version 2)
Quarter: 2014Q1

REPORT INFORMATION
  Report Type: Spontaneous
  Country: CA (occurrence: CA)
  Receive Date: 20140131
  Receipt Date: 20140131
  Transmission Date: 20141002
  Serious: Yes (Hospitalization)
  Sender: FDA-Public Use
  Company Number: CA-GILEAD-2012-0058762

PATIENT
  Age: 45 Year
  Sex: Female

DRUGS (7)
  1. AMBRISENTAN [Suspect]
     Indication: PULMONARY HYPERTENSION
     Dosage: 5MG PER DAY
     Route: 048
     Dates: start: 20120228
  2. ADCIRCA [Concomitant]
  3. GLYBURIDE [Concomitant]
  4. METFORMIN [Concomitant]
  5. LASIX                              /00032601/ [Concomitant]
  6. POTASSIUM [Concomitant]
  7. ASPIRIN [Concomitant]

REACTIONS (6)
  - Dyspnoea [Not Recovered/Not Resolved]
  - Oedema [Unknown]
  - General physical health deterioration [Unknown]
  - Pulmonary arterial pressure increased [Unknown]
  - Joint swelling [Not Recovered/Not Resolved]
  - Local swelling [Not Recovered/Not Resolved]
